FAERS Safety Report 6241941-2 (Version None)
Quarter: 2009Q2

REPORT INFORMATION
  Report Type: 
  Country: None (occurrence: None)
  Receive Date: 20090623
  Receipt Date: 20090610
  Transmission Date: 20091009
  Serious: Yes (Other)
  Sender: FDA-Public Use
  Company Number: IT-MERCK-0906ITA00027

PATIENT
  Age: 77 Year
  Sex: Female

DRUGS (1)
  1. MONTELUKAST [Suspect]
     Indication: ASTHMA
     Route: 048

REACTIONS (2)
  - ALLERGIC GRANULOMATOUS ANGIITIS [None]
  - COUGH [None]
